FAERS Safety Report 25128060 (Version 2)
Quarter: 2025Q2

REPORT INFORMATION
  Report Type: Spontaneous
  Country: US (occurrence: US)
  Receive Date: 20250327
  Receipt Date: 20250410
  Transmission Date: 20250717
  Serious: Yes (Hospitalization)
  Sender: BRISTOL MYERS SQUIBB
  Company Number: US-BRISTOL-MYERS SQUIBB COMPANY-2025-043898

PATIENT
  Age: 80 Year
  Sex: Male
  Weight: 116.6 kg

DRUGS (1)
  1. REVLIMID [Suspect]
     Active Substance: LENALIDOMIDE
     Indication: Product used for unknown indication
     Dosage: 3 WEEKS ON/1 WEEK OFF
     Route: 048

REACTIONS (1)
  - Illness [Not Recovered/Not Resolved]
